FAERS Safety Report 5811612-2 (Version None)
Quarter: 2008Q3

REPORT INFORMATION
  Report Type: 
  Country: None (occurrence: None)
  Receive Date: 20080711
  Receipt Date: 20080711
  Transmission Date: 20090109
  Serious: Yes (Life-Threatening, Disabling, Congenital Anomaly, Other)
  Sender: FDA-Public Use
  Company Number: None

PATIENT
  Sex: Female
  Weight: 48.0813 kg

DRUGS (3)
  1. RISPERDAL [Suspect]
     Indication: PHYSICAL ABUSE
     Dosage: 1 MG 2X/DAY ORAL
     Route: 048
  2. ORTHO TRI-CYCLEN LO [Suspect]
     Indication: CONTRACEPTION
     Dosage: 1 TABLET 1X/DAY ORAL
     Route: 048
  3. HIGH BLOOD PRESSURE MEDICINE [Concomitant]

REACTIONS (3)
  - SEXUALLY TRANSMITTED DISEASE [None]
  - VAGINAL DISCHARGE [None]
  - VAGINAL INFECTION [None]
